FAERS Safety Report 6940698-7 (Version None)
Quarter: 2010Q3

REPORT INFORMATION
  Report Type: 
  Country: None (occurrence: None)
  Receive Date: 20100820
  Receipt Date: 20100806
  Transmission Date: 20110219
  Serious: Yes (Hospitalization)
  Sender: FDA-Public Use
  Company Number: A-US2009-27847

PATIENT
  Age: 77 Year
  Sex: Female

DRUGS (1)
  1. TRACLEER [Suspect]
     Indication: PULMONARY ARTERIAL HYPERTENSION
     Dosage: 125 MG BID ORAL
     Route: 048
     Dates: start: 20090727

REACTIONS (3)
  - DIZZINESS [None]
  - LIVER FUNCTION TEST ABNORMAL [None]
  - THROMBOSIS [None]
